FAERS Safety Report 17807960 (Version 1)
Quarter: 2020Q2

REPORT INFORMATION
  Report Type: Spontaneous
  Country: DK (occurrence: DK)
  Receive Date: 20200520
  Receipt Date: 20200520
  Transmission Date: 20200714
  Serious: Yes (Other)
  Sender: FDA-Public Use
  Company Number: DK-PFIZER INC-2020197070

PATIENT
  Age: 50 Year
  Sex: Male

DRUGS (7)
  1. METHOTREXATE. [Suspect]
     Active Substance: METHOTREXATE
     Dosage: 25 MG, WEEKLY
     Dates: start: 20130706, end: 20160809
  2. METHOTREXATE. [Suspect]
     Active Substance: METHOTREXATE
     Indication: RHEUMATOID ARTHRITIS
     Dosage: 15 MG, WEEKLY
     Dates: start: 201211
  3. PREDNISOLONE. [Concomitant]
     Active Substance: PREDNISOLONE
     Indication: ARTHRALGIA
     Dosage: 12.5 MG, DAILY
     Route: 048
     Dates: start: 2012
  4. PREDNISOLONE. [Concomitant]
     Active Substance: PREDNISOLONE
     Dosage: 5 MG, DAILY
     Route: 048
     Dates: start: 20150401
  5. METHOTREXATE. [Suspect]
     Active Substance: METHOTREXATE
     Dosage: 20 MG, WEEKLY
     Dates: start: 20130409
  6. PLAQUENIL [Suspect]
     Active Substance: HYDROXYCHLOROQUINE SULFATE
     Indication: RHEUMATOID ARTHRITIS
     Dosage: UNK
     Route: 048
     Dates: start: 20130821, end: 20170627
  7. PREDNISOLONE. [Concomitant]
     Active Substance: PREDNISOLONE
     Dosage: DOSE REDUCED
     Route: 048
     Dates: start: 201410

REACTIONS (7)
  - Dry mouth [Unknown]
  - Neuropathy peripheral [Unknown]
  - Osteopenia [Unknown]
  - Intervertebral disc protrusion [Unknown]
  - Pain in extremity [Not Recovered/Not Resolved]
  - Burning feet syndrome [Unknown]
  - Small fibre neuropathy [Unknown]

NARRATIVE: CASE EVENT DATE: 201410
